FAERS Safety Report 5529028-5 (Version None)
Quarter: 2007Q4

REPORT INFORMATION
  Report Type: 
  Country: None (occurrence: None)
  Receive Date: 20071119
  Receipt Date: 20071015
  Transmission Date: 20080405
  Serious: No
  Sender: FDA-Public Use
  Company Number: TPA2007A02118

PATIENT
  Age: 60 Year
  Sex: Male
  Weight: 117.9352 kg

DRUGS (9)
  1. ROZEREM [Suspect]
     Indication: INSOMNIA
     Dosage: 8 MG, 1/2 HR PRIOR TO BEDTIME, PER ORAL; 8 MG, PER ORAL
     Route: 048
     Dates: start: 20070913, end: 20071014
  2. ROZEREM [Suspect]
     Indication: INSOMNIA
     Dosage: 8 MG, 1/2 HR PRIOR TO BEDTIME, PER ORAL; 8 MG, PER ORAL
     Route: 048
     Dates: start: 20070701
  3. MIRAPEX [Concomitant]
  4. STRATTERA [Concomitant]
  5. FORADIL INHALER (FORMOTEROL) (INHALANT) [Concomitant]
  6. Q-VAR INHALER (BECLOMETASONE DIPROPIONATE) (INHALANT) [Concomitant]
  7. COMBIVENT INHALER (IPRATROPIUM BROMIDE, SALBUTAMOL SUFLATE) (INHALANT) [Concomitant]
  8. PERCOCET [Concomitant]
  9. ENBREL [Concomitant]

REACTIONS (4)
  - DRUG INEFFECTIVE [None]
  - HEADACHE [None]
  - PRURITUS [None]
  - RASH [None]
